FAERS Safety Report 9315654 (Version 2)
Quarter: 2013Q3

REPORT INFORMATION
  Report Type: Spontaneous
  Country: US (occurrence: US)
  Receive Date: 20130529
  Receipt Date: 20130812
  Transmission Date: 20140515
  Serious: Yes (Other)
  Sender: FDA-Public Use
  Company Number: CHPA2013US008883

PATIENT
  Age: 66 Year
  Sex: Male

DRUGS (3)
  1. MYOFLEX ANALGESIC CREME [Suspect]
     Indication: BACK PAIN
     Dosage: UNK DF, PRN
     Route: 061
  2. MYOFLEX ANALGESIC CREME [Suspect]
     Indication: MYALGIA
  3. MYOFLEX ANALGESIC CREME [Suspect]
     Indication: ARTHRITIS

REACTIONS (2)
  - House dust allergy [Not Recovered/Not Resolved]
  - Sunburn [Not Recovered/Not Resolved]
